FAERS Safety Report 9001362 (Version 1)
Quarter: 2013Q1

REPORT INFORMATION
  Report Type: Spontaneous
  Country: US (occurrence: US)
  Receive Date: 20130107
  Receipt Date: 20130107
  Transmission Date: 20140127
  Serious: No
  Sender: FDA-Public Use
  Company Number: US-ASTELLAS-2012US011234

PATIENT
  Sex: Male

DRUGS (3)
  1. VAPRISOL [Suspect]
     Indication: HYPOKALAEMIA
     Dosage: 20 MG, UNKNOWN/D
     Route: 042
     Dates: start: 20121001, end: 20121007
  2. VAPRISOL [Suspect]
     Indication: MYOCARDIAL ISCHAEMIA
  3. VAPRISOL [Suspect]
     Indication: CARDIAC FAILURE

REACTIONS (1)
  - Off label use [Unknown]
